FAERS Safety Report 4352473-0 (Version None)
Quarter: 2004Q2

REPORT INFORMATION
  Report Type: 
  Country: None (occurrence: None)
  Receive Date: 20040428
  Receipt Date: 20040415
  Transmission Date: 20050107
  Serious: Yes (Hospitalization)
  Sender: FDA-Public Use
  Company Number: 200410233BFR

PATIENT
  Age: 50 Year
  Sex: Male
  Weight: 130 kg

DRUGS (3)
  1. CIPROFLOXACIN [Suspect]
     Indication: OSTEOMYELITIS
     Dosage: SEE IMGE
     Route: 048
     Dates: start: 20031113, end: 20040212
  2. CIPROFLOXACIN [Suspect]
     Indication: OSTEOMYELITIS
     Dosage: SEE IMGE
     Route: 048
     Dates: start: 20040213, end: 20040224
  3. UNCODEABLE [Concomitant]

REACTIONS (5)
  - DIFFICULTY IN WALKING [None]
  - LYMPHANGITIS [None]
  - PAIN [None]
  - TENDON DISORDER [None]
  - TENDON INJURY [None]
